FAERS Safety Report 10227967 (Version 1)
Quarter: 2014Q2

REPORT INFORMATION
  Report Type: Report from Study
  Country: US (occurrence: US)
  Receive Date: 20140610
  Receipt Date: 20140610
  Transmission Date: 20141212
  Serious: Yes (Other)
  Sender: FDA-Public Use
  Company Number: US-ABBVIE-14P-163-1243136-00

PATIENT
  Age: 74 Year
  Sex: Male

DRUGS (5)
  1. HUMIRA [Suspect]
     Indication: RHEUMATOID ARTHRITIS
     Dates: start: 2003
  2. HUMIRA [Suspect]
     Dosage: AS NEEDED: STREACHED DOSING TO 16-18 DAYS.
     Dates: start: 201402
  3. METHOTREXATE [Suspect]
     Indication: PRODUCT USED FOR UNKNOWN INDICATION
  4. DIMETAPP [Suspect]
     Indication: NASOPHARYNGITIS
  5. FOLIC ACID [Concomitant]
     Indication: PRODUCT USED FOR UNKNOWN INDICATION

REACTIONS (14)
  - Cyst [Not Recovered/Not Resolved]
  - Laceration [Unknown]
  - Onychoclasis [Unknown]
  - Injection site haemorrhage [Unknown]
  - Alopecia [Recovered/Resolved]
  - Nasopharyngitis [Recovered/Resolved]
  - Pollakiuria [Recovered/Resolved]
  - Thirst [Recovered/Resolved]
  - Dry eye [Unknown]
  - Injection site pain [Not Recovered/Not Resolved]
  - Injection site pain [Not Recovered/Not Resolved]
  - Musculoskeletal stiffness [Not Recovered/Not Resolved]
  - Pain in extremity [Not Recovered/Not Resolved]
  - Impaired healing [Unknown]
